FAERS Safety Report 9182373 (Version 2)
Quarter: 2013Q2

REPORT INFORMATION
  Report Type: Spontaneous
  Country: US (occurrence: None)
  Receive Date: 20120621
  Receipt Date: 20130621
  Transmission Date: 20140414
  Serious: Yes (Other)
  Sender: FDA-Public Use
  Company Number: 055234

PATIENT
  Age: 56 Year
  Sex: Male
  Weight: 80.7 kg

DRUGS (5)
  1. CIMZIA [Suspect]
  2. CARVEDILOL [Concomitant]
  3. CITALOPRAM [Concomitant]
  4. NEXIUM /01479302/ [Concomitant]
  5. PENTAGIN /00052101/ [Concomitant]

REACTIONS (1)
  - Hypertension [None]
